FAERS Safety Report 13320861 (Version 1)
Quarter: 2017Q1

REPORT INFORMATION
  Report Type: Spontaneous
  Country: US (occurrence: US)
  Receive Date: 20170310
  Receipt Date: 20170310
  Transmission Date: 20170428
  Serious: No
  Sender: FDA-Public Use
  Company Number: US-BRAEBURN PHARMACEUTICALS, INC.-2017BBN00004

PATIENT
  Sex: Female

DRUGS (1)
  1. PROBUPHINE [Suspect]
     Active Substance: BUPRENORPHINE HYDROCHLORIDE

REACTIONS (2)
  - Malaise [Unknown]
  - Irritability [Unknown]
